FAERS Safety Report 24651718 (Version 3)
Quarter: 2025Q4

REPORT INFORMATION
  Report Type: Spontaneous
  Country: US (occurrence: US)
  Receive Date: 20241122
  Receipt Date: 20251103
  Transmission Date: 20260117
  Serious: Yes (Death, Other)
  Sender: ROCHE
  Company Number: US-ROCHE-10000136357

PATIENT
  Age: 77 Year
  Sex: Male

DRUGS (3)
  1. RITUXIMAB [Suspect]
     Active Substance: RITUXIMAB
     Indication: Glomerulonephritis rapidly progressive
     Route: 065
  2. METHYLPREDNISOLONE [Suspect]
     Active Substance: METHYLPREDNISOLONE
     Indication: Glomerulonephritis rapidly progressive
     Dosage: HIGH DOSE
     Route: 042
  3. PREDNISONE [Suspect]
     Active Substance: PREDNISONE
     Indication: Glomerulonephritis rapidly progressive
     Route: 065

REACTIONS (7)
  - Osteomyelitis [Unknown]
  - Enterobacter bacteraemia [Unknown]
  - Herpes zoster disseminated [Unknown]
  - End stage renal disease [Unknown]
  - Septic shock [Fatal]
  - Intervertebral discitis [Unknown]
  - Extradural abscess [Unknown]
